FAERS Safety Report 9507535 (Version 6)
Quarter: 2015Q4

REPORT INFORMATION
  Report Type: Spontaneous
  Country: JP (occurrence: JP)
  Receive Date: 20130909
  Receipt Date: 20151023
  Transmission Date: 20160305
  Serious: Yes (Hospitalization, Other)
  Sender: FDA-Public Use
  Company Number: JP-ASTELLAS-2013US009339

PATIENT
  Age: 81 Year
  Sex: Female

DRUGS (5)
  1. TARCEVA [Suspect]
     Active Substance: ERLOTINIB HYDROCHLORIDE
     Indication: NON-SMALL CELL LUNG CANCER
     Dosage: 25 MG, ONCE DAILY (MAINTENANCE DOSE)
     Route: 048
     Dates: end: 20130819
  2. TARCEVA [Suspect]
     Active Substance: ERLOTINIB HYDROCHLORIDE
     Route: 048
  3. APRINDINE HYDROCHLORIDE [Suspect]
     Active Substance: APRINDINE HYDROCHLORIDE
     Indication: SUPRAVENTRICULAR TACHYCARDIA
     Route: 065
  4. APRINDINE HYDROCHLORIDE [Suspect]
     Active Substance: APRINDINE HYDROCHLORIDE
     Indication: LUNG ADENOCARCINOMA METASTATIC
  5. TARCEVA [Suspect]
     Active Substance: ERLOTINIB HYDROCHLORIDE
     Indication: LUNG ADENOCARCINOMA METASTATIC
     Route: 048
     Dates: start: 20110701

REACTIONS (6)
  - Agranulocytosis [Recovered/Resolved]
  - Dermatitis acneiform [Unknown]
  - Sepsis [Recovered/Resolved]
  - Insomnia [Unknown]
  - Staphylococcal skin infection [Unknown]
  - Toxic shock syndrome [Unknown]

NARRATIVE: CASE EVENT DATE: 20130819
